FAERS Safety Report 6424511-2 (Version None)
Quarter: 2009Q4

REPORT INFORMATION
  Report Type: 
  Country: None (occurrence: None)
  Receive Date: 20091103
  Receipt Date: 20091020
  Transmission Date: 20100525
  Serious: Yes (Other)
  Sender: FDA-Public Use
  Company Number: GB-ROCHE-635371

PATIENT
  Age: 78 Year
  Sex: Female

DRUGS (6)
  1. XENICAL [Suspect]
     Indication: WEIGHT CONTROL
     Route: 048
     Dates: start: 20081014
  2. ICAPS [Interacting]
     Indication: MACULAR DEGENERATION
     Dosage: DRUG NAME: COPPER, LUTEIN, MANGANESE, SELENIUM, VITAMIN A, VITAMIN C, VITAMIN E, ZEAXANTHIN AND ZINC
     Route: 048
  3. IRON [Concomitant]
     Route: 048
  4. OMEPRAZOLE [Concomitant]
     Route: 048
  5. VITAMIN B COMPLEX CAP [Concomitant]
     Dosage: ACTIVE CONSTITUENT: VITAMIN B5.
  6. EVENING PRIMROSE OIL [Concomitant]

REACTIONS (2)
  - DRUG INTERACTION [None]
  - MACULAR DEGENERATION [None]
